FAERS Safety Report 15027169 (Version 2)
Quarter: 2018Q2

REPORT INFORMATION
  Report Type: Spontaneous
  Country: US (occurrence: US)
  Receive Date: 20180619
  Receipt Date: 20180627
  Transmission Date: 20180711
  Serious: Yes (Life-Threatening, Hospitalization, Other)
  Sender: FDA-Public Use
  Company Number: US-BRISTOL-MYERS SQUIBB COMPANY-BMS-2018-054106

PATIENT
  Sex: Female

DRUGS (1)
  1. ELIQUIS [Suspect]
     Active Substance: APIXABAN
     Indication: CEREBROVASCULAR ACCIDENT PROPHYLAXIS
     Dosage: 2.5 MG, BID
     Route: 048
     Dates: start: 201804

REACTIONS (7)
  - Lethargy [Unknown]
  - Pneumonia [Unknown]
  - Pulmonary oedema [Unknown]
  - Sepsis [Unknown]
  - Hallucination [Unknown]
  - Dehydration [Unknown]
  - Hypoaesthesia [Unknown]
